FAERS Safety Report 8934273 (Version 2)
Quarter: 2013Q2

REPORT INFORMATION
  Report Type: Spontaneous
  Country: FR (occurrence: FR)
  Receive Date: 20121129
  Receipt Date: 20130510
  Transmission Date: 20140414
  Serious: Yes (Other)
  Sender: FDA-Public Use
  Company Number: PHHY2012FR107839

PATIENT
  Age: 69 Year
  Sex: Male

DRUGS (7)
  1. ZOMETA [Suspect]
     Dosage: UNK UKN, UNK
     Route: 042
     Dates: start: 201110
  2. TAMOXIFEN [Suspect]
     Dosage: UNK UKN, UNK
     Route: 048
  3. AMLOR [Concomitant]
     Dosage: UNK UKN, UNK
  4. ZYLORIC [Concomitant]
     Dosage: UNK UKN, UNK
  5. TAHOR [Concomitant]
     Dosage: UNK UKN, UNK
  6. KARDEGIC [Concomitant]
     Dosage: UNK UKN, UNK
  7. SELOKEN [Concomitant]
     Dosage: UNK UKN, UNK

REACTIONS (3)
  - Intravascular papillary endothelial hyperplasia [Unknown]
  - Angiokeratoma [Unknown]
  - Aortic aneurysm [Unknown]
